FAERS Safety Report 7426640-3 (Version None)
Quarter: 2011Q2

REPORT INFORMATION
  Report Type: 
  Country: None (occurrence: None)
  Receive Date: 20110413
  Receipt Date: 20110328
  Transmission Date: 20111010
  Serious: No
  Sender: FDA-Public Use
  Company Number: 2010-2951

PATIENT
  Age: 14 Year
  Sex: Female
  Weight: 36.9 kg

DRUGS (7)
  1. PANTANASE (OLOPATADINE) [Concomitant]
  2. INCRELEX [Suspect]
     Indication: INSULIN-LIKE GROWTH FACTOR DECREASED
     Dosage: 88 UNITS (44 UNTIS, 2 IN 1 D), SUBCUTANEOUS
     Route: 058
     Dates: start: 20100815, end: 20101021
  3. INCRELEX [Suspect]
     Indication: INSULIN-LIKE GROWTH FACTOR DECREASED
     Dosage: 88 UNITS (44 UNTIS, 2 IN 1 D), SUBCUTANEOUS
     Route: 058
     Dates: start: 20101216
  4. ZYRTEC [Concomitant]
  5. W OPTIVAR (AZELASTINE HYDROCHLORIDE) [Concomitant]
  6. NASONEX [Concomitant]
  7. ANTI-DEPRESSION MEDICATIONS (OTHER ANTIDEPRESSANTS) [Concomitant]

REACTIONS (6)
  - HYPOGLYCAEMIA [None]
  - DIZZINESS [None]
  - FATIGUE [None]
  - HEADACHE [None]
  - DISTURBANCE IN ATTENTION [None]
  - HYPOACUSIS [None]
